FAERS Safety Report 17771571 (Version 5)
Quarter: 2020Q3

REPORT INFORMATION
  Report Type: Spontaneous
  Country: US (occurrence: US)
  Receive Date: 20200512
  Receipt Date: 20200702
  Transmission Date: 20201102
  Serious: Yes (Hospitalization, Other)
  Sender: FDA-Public Use
  Company Number: US-PURDUE PHARMA-USA-2020-0152737

PATIENT
  Sex: Male

DRUGS (1)
  1. OXYCONTIN [Suspect]
     Active Substance: OXYCODONE HYDROCHLORIDE
     Indication: ARTHRALGIA
     Route: 048

REACTIONS (9)
  - Back injury [Not Recovered/Not Resolved]
  - Pain [Unknown]
  - Impaired work ability [Not Recovered/Not Resolved]
  - Anxiety [Unknown]
  - Tooth disorder [Unknown]
  - Loss of consciousness [Unknown]
  - Road traffic accident [Unknown]
  - Paralysis [Unknown]
  - Disability [Unknown]
